FAERS Safety Report 5218820-2 (Version None)
Quarter: 2007Q1

REPORT INFORMATION
  Report Type: 
  Country: None (occurrence: None)
  Receive Date: 20070122
  Receipt Date: 20070122
  Transmission Date: 20070707
  Serious: Yes (Hospitalization)
  Sender: FDA-Public Use
  Company Number: None

PATIENT
  Age: 65 Year
  Sex: Male
  Weight: 99.7913 kg

DRUGS (2)
  1. HYDROMORPHONE HCL [Suspect]
  2. MORPHINE SUL TAB [Suspect]

REACTIONS (1)
  - CONSTIPATION [None]
